FAERS Safety Report 23683513 (Version 1)
Quarter: 2024Q1

REPORT INFORMATION
  Report Type: Spontaneous
  Country: US (occurrence: None)
  Receive Date: 20240328
  Receipt Date: 20240328
  Transmission Date: 20240410
  Serious: Yes (Hospitalization)
  Sender: FDA-Public Use
  Company Number: None

PATIENT
  Age: 39 Year
  Sex: Male
  Weight: 116.1 kg

DRUGS (3)
  1. CYTARABINE [Suspect]
     Active Substance: CYTARABINE
     Dates: end: 20240304
  2. SPRYCEL [Suspect]
     Active Substance: DASATINIB
     Dates: end: 20240318
  3. METHOTREXATE [Suspect]
     Active Substance: METHOTREXATE
     Dates: end: 20240301

REACTIONS (3)
  - Pyrexia [None]
  - Peripheral swelling [None]
  - Polyarthritis [None]

NARRATIVE: CASE EVENT DATE: 20240318
